FAERS Safety Report 6145055-1 (Version None)
Quarter: 2009Q2

REPORT INFORMATION
  Report Type: 
  Country: None (occurrence: None)
  Receive Date: 20090402
  Receipt Date: 20090218
  Transmission Date: 20091009
  Serious: No
  Sender: FDA-Public Use
  Company Number: 1000004805

PATIENT
  Age: 72 Year
  Sex: Male

DRUGS (6)
  1. BYSTOLIC [Suspect]
     Indication: HYPERTENSION
     Dosage: 5 MG (5 MG, 1 IN 1 D), ORAL : 10 MG (10 MG, 1 IN 1 D), ORAL
     Route: 048
     Dates: start: 20081216, end: 20081223
  2. BYSTOLIC [Suspect]
     Indication: HYPERTENSION
     Dosage: 5 MG (5 MG, 1 IN 1 D), ORAL : 10 MG (10 MG, 1 IN 1 D), ORAL
     Route: 048
     Dates: start: 20081224
  3. VITAMINS [Concomitant]
  4. LIPITOR [Concomitant]
  5. AMBIEN [Concomitant]
  6. FENTANYL [Concomitant]

REACTIONS (1)
  - ERECTILE DYSFUNCTION [None]
